FAERS Safety Report 21440944 (Version 1)
Quarter: 2022Q4

REPORT INFORMATION
  Report Type: Spontaneous
  Country: US (occurrence: US)
  Receive Date: 20221011
  Receipt Date: 20221011
  Transmission Date: 20230113
  Serious: Yes (Other)
  Sender: FDA-Public Use
  Company Number: US-NOVARTISTESTPH-NVSC2022US218671

PATIENT
  Sex: Male
  Weight: 81.7 kg

DRUGS (5)
  1. GLEEVEC [Interacting]
     Active Substance: IMATINIB MESYLATE
     Indication: Chemotherapy
     Dosage: 300 MG
     Route: 065
  2. ABILIFY [Suspect]
     Active Substance: ARIPIPRAZOLE
     Indication: Major depression
     Dosage: 2 MG
     Route: 065
  3. PROZAC [Suspect]
     Active Substance: FLUOXETINE HYDROCHLORIDE
     Indication: Major depression
     Dosage: 45 MG
     Route: 065
  4. REXULTI [Interacting]
     Active Substance: BREXPIPRAZOLE
     Indication: Major depression
     Dosage: 0.5 MG (NIGHT)
     Route: 048
     Dates: start: 20220901
  5. VALSARTAN [Concomitant]
     Active Substance: VALSARTAN
     Indication: Hypertension
     Dosage: UNK
     Route: 065

REACTIONS (7)
  - Neuropathy peripheral [Unknown]
  - Restlessness [Unknown]
  - Feeling abnormal [Unknown]
  - Drug interaction [Unknown]
  - Drug effective for unapproved indication [Unknown]
  - Somnolence [Unknown]
  - Tremor [Unknown]
